FAERS Safety Report 6750272-3 (Version None)
Quarter: 2010Q2

REPORT INFORMATION
  Report Type: 
  Country: None (occurrence: None)
  Receive Date: 20100601
  Receipt Date: 20100524
  Transmission Date: 20101027
  Serious: Yes (Hospitalization)
  Sender: FDA-Public Use
  Company Number: AU-PFIZER INC-2008043995

PATIENT
  Age: 65 Year
  Sex: Female
  Weight: 83 kg

DRUGS (39)
  1. CYCLOSPORINE [Suspect]
     Indication: RENAL TRANSPLANT
     Dosage: 200 MG, 2X/DAY
     Route: 048
     Dates: start: 20080430
  2. CYCLOSPORINE [Suspect]
     Dosage: 250 MG, 2X/DAY
     Route: 048
     Dates: start: 20080513, end: 20080513
  3. CYCLOSPORINE [Suspect]
     Dosage: 225 MG, 2X/DAY
     Route: 048
     Dates: start: 20080514, end: 20080514
  4. CYCLOSPORINE [Suspect]
     Dosage: 200 MG, 2X/DAY
     Route: 048
     Dates: start: 20080515
  5. SOLU-MEDROL [Suspect]
     Dosage: 1000 MG, 1X/DAY
     Route: 042
     Dates: start: 20080513, end: 20080515
  6. SOLU-MEDROL [Suspect]
     Dosage: 500 MG, SINGLE, ONE DOSE ONLY
     Route: 042
     Dates: start: 20080430, end: 20080430
  7. SOLU-MEDROL [Suspect]
     Dosage: 1000 MG, 1X/DAY
     Route: 042
     Dates: start: 20080622, end: 20080624
  8. AMITRIPTYLINE [Concomitant]
     Route: 048
     Dates: start: 20080502
  9. CALCITRIOL [Concomitant]
     Route: 048
     Dates: start: 20080506
  10. CALCIUM CARBONATE [Concomitant]
     Route: 048
     Dates: start: 20080506
  11. RISEDRONATE SODIUM [Concomitant]
     Route: 048
     Dates: start: 20080506
  12. OXAZEPAM [Concomitant]
     Route: 048
     Dates: start: 20080502
  13. PANTOPRAZOLE [Concomitant]
     Route: 048
     Dates: start: 20080326
  14. SERTRALINE HCL [Concomitant]
     Route: 048
     Dates: start: 20080502
  15. LEVOTHYROXINE SODIUM [Concomitant]
     Route: 048
     Dates: start: 20080505
  16. SIMULECT [Concomitant]
     Route: 042
     Dates: start: 20080430, end: 20080430
  17. SIMULECT [Concomitant]
     Route: 042
     Dates: start: 20080504, end: 20080504
  18. FENTANYL [Concomitant]
     Route: 042
     Dates: start: 20080430, end: 20080502
  19. FRUSEMIDE [Concomitant]
     Route: 042
     Dates: start: 20080501, end: 20080501
  20. MYLANTA [Concomitant]
     Route: 048
     Dates: start: 20080501, end: 20080501
  21. PARACETAMOL [Concomitant]
     Route: 048
     Dates: start: 20080501, end: 20080523
  22. BACTRIM [Concomitant]
     Route: 048
     Dates: start: 20080430
  23. AMPHOTERICIN B [Concomitant]
     Route: 048
     Dates: start: 20080501
  24. OXYCODONE [Concomitant]
     Route: 048
     Dates: start: 20080502, end: 20080502
  25. TROPISETRON [Concomitant]
     Route: 042
     Dates: start: 20080501, end: 20080501
  26. DROPERIDOL [Concomitant]
     Route: 042
     Dates: start: 20080501, end: 20080502
  27. MYCOPHENOLATE MOFETIL [Concomitant]
     Route: 048
     Dates: start: 20080430
  28. PREDNISOLONE [Concomitant]
     Route: 048
     Dates: start: 20080502
  29. ATORVASTATIN [Concomitant]
     Route: 048
     Dates: start: 20080505
  30. ACTRAPID [Concomitant]
     Route: 058
     Dates: start: 20080430, end: 20080506
  31. GLICLAZIDE [Concomitant]
     Route: 048
     Dates: start: 20080504, end: 20080515
  32. ISOPHANE INSULIN [Concomitant]
     Route: 058
     Dates: start: 20080506, end: 20080515
  33. FRUSEMIDE [Concomitant]
     Route: 042
     Dates: start: 20080503, end: 20080503
  34. MICROLAX [Concomitant]
     Route: 054
     Dates: start: 20080503, end: 20080504
  35. COLOXYL WITH SENNA [Concomitant]
     Route: 048
     Dates: start: 20080504, end: 20080505
  36. MYLANTA [Concomitant]
     Route: 048
     Dates: start: 20080505, end: 20080505
  37. FRUSEMIDE [Concomitant]
     Route: 048
     Dates: start: 20080509, end: 20080509
  38. FRUSEMIDE [Concomitant]
     Route: 048
     Dates: start: 20080513
  39. SODIBIC [Concomitant]
     Route: 048
     Dates: start: 20080513

REACTIONS (1)
  - DIABETES MELLITUS [None]
